FAERS Safety Report 26117034 (Version 1)
Quarter: 2025Q4

REPORT INFORMATION
  Report Type: Spontaneous
  Country: US (occurrence: US)
  Receive Date: 20251203
  Receipt Date: 20251203
  Transmission Date: 20260118
  Serious: Yes (Hospitalization)
  Sender: DR REDDYS
  Company Number: US-DRL-USA-USA/2025/11/018060

PATIENT
  Sex: Female

DRUGS (2)
  1. HABITROL [Suspect]
     Active Substance: NICOTINE
     Indication: Ex-tobacco user
     Route: 062
  2. NICOTINE [Suspect]
     Active Substance: NICOTINE
     Indication: Tobacco user

REACTIONS (2)
  - Amputation [Unknown]
  - Product availability issue [Unknown]
